FAERS Safety Report 24771588 (Version 1)
Quarter: 2024Q4

REPORT INFORMATION
  Report Type: Spontaneous
  Country: DK (occurrence: DK)
  Receive Date: 20241224
  Receipt Date: 20241224
  Transmission Date: 20250115
  Serious: Yes (Other)
  Sender: ELI LILLY AND COMPANY
  Company Number: None

PATIENT
  Age: 49 Year
  Sex: Female

DRUGS (2)
  1. EMGALITY [Suspect]
     Active Substance: GALCANEZUMAB-GNLM
     Indication: Migraine prophylaxis
     Dosage: 120 MG, MONTHLY (1/M)
     Route: 058
     Dates: start: 202310
  2. AIMOVIG [Concomitant]
     Active Substance: ERENUMAB\ERENUMAB-AOOE
     Indication: Migraine prophylaxis
     Dosage: 140 MG, MONTHLY (1/M)
     Route: 058
     Dates: start: 202404

REACTIONS (6)
  - Rheumatoid arthritis [Not Recovered/Not Resolved]
  - Pain [Unknown]
  - Musculoskeletal stiffness [Unknown]
  - Oedema [Unknown]
  - Oedema peripheral [Unknown]
  - Fibromyalgia [Unknown]

NARRATIVE: CASE EVENT DATE: 20231001
